FAERS Safety Report 20736272 (Version 1)
Quarter: 2022Q2

REPORT INFORMATION
  Report Type: Report from Study
  Country: IN (occurrence: IN)
  Receive Date: 20220421
  Receipt Date: 20220421
  Transmission Date: 20220721
  Serious: Yes (Hospitalization, Other)
  Sender: FDA-Public Use
  Company Number: IN-NOVARTISPH-NVSC2021IN289150

PATIENT
  Age: 44 Year
  Sex: Male

DRUGS (21)
  1. SIMULECT [Suspect]
     Active Substance: BASILIXIMAB
     Indication: Renal transplant
     Dosage: 20 MG (2 DOSES)
     Route: 065
     Dates: start: 20211118
  2. SIMULECT [Suspect]
     Active Substance: BASILIXIMAB
     Dosage: UNK
     Route: 065
     Dates: start: 20211122, end: 20211122
  3. TACROLIMUS [Suspect]
     Active Substance: TACROLIMUS
     Indication: Product used for unknown indication
     Dosage: (2.25-0-2 MG)
     Route: 065
  4. TACROLIMUS [Suspect]
     Active Substance: TACROLIMUS
     Dosage: 3.0 MG- 0- 3.0 MG
     Route: 065
  5. MYCOPHENOLATE MOFETIL [Suspect]
     Active Substance: MYCOPHENOLATE MOFETIL
     Indication: Product used for unknown indication
     Dosage: UNK (750-0-500 MG)
     Route: 065
  6. MYCOPHENOLATE MOFETIL [Suspect]
     Active Substance: MYCOPHENOLATE MOFETIL
     Dosage: (750 MG- 0 -750 MG)
     Route: 065
  7. PIPERACILLIN AND TAZOBACTAM [Concomitant]
     Active Substance: PIPERACILLIN SODIUM\TAZOBACTAM SODIUM
     Indication: Product used for unknown indication
     Dosage: 4.5 G
     Route: 065
  8. PRAZOPRESS [Concomitant]
     Indication: Product used for unknown indication
     Dosage: UNK (2-0-2)
     Route: 065
  9. NICARDIA XL [Concomitant]
     Indication: Product used for unknown indication
     Dosage: UNK (1-1-1-1)
     Route: 065
  10. CALCIUM CARBONATE\CHOLECALCIFEROL [Concomitant]
     Active Substance: CALCIUM CARBONATE\CHOLECALCIFEROL
     Indication: Product used for unknown indication
     Dosage: UNK (500) (0-1-0)
     Route: 065
  11. BECOSULES [Concomitant]
     Indication: Product used for unknown indication
     Dosage: UNK (1-0-0)
     Route: 065
  12. MVBC [Concomitant]
     Indication: Product used for unknown indication
     Dosage: UNK (1-0-0)
     Route: 065
  13. SEPTRAN [Concomitant]
     Indication: Product used for unknown indication
     Dosage: UNK (0-0-1/2)
     Route: 065
  14. UNSPECIFIED INGREDIENT [Concomitant]
     Active Substance: UNSPECIFIED INGREDIENT
     Indication: Product used for unknown indication
     Dosage: UNK (4.5-5 LITRE/DAY)
     Route: 065
  15. MOUTH WASH [Concomitant]
     Indication: Product used for unknown indication
     Dosage: UNK UNK, Q8H
     Route: 065
  16. CLOGEN [Concomitant]
     Indication: Product used for unknown indication
     Dosage: UNK UNK, BID
     Route: 065
  17. RANITIDINE HYDROCHLORIDE [Concomitant]
     Active Substance: RANITIDINE HYDROCHLORIDE
     Indication: Product used for unknown indication
     Dosage: UNK, BID (150)
     Route: 065
  18. PHENIRAMINE [Concomitant]
     Active Substance: PHENIRAMINE
     Indication: Product used for unknown indication
     Dosage: UNK
     Route: 042
  19. SODIUM CHLORIDE [Concomitant]
     Active Substance: SODIUM CHLORIDE
     Indication: Product used for unknown indication
     Dosage: UNK (50 ML/HOUR)
     Route: 041
  20. LASIX [Concomitant]
     Active Substance: FUROSEMIDE
     Indication: Product used for unknown indication
     Dosage: 40 MG, BID
     Route: 065
  21. CEFUROXIME SODIUM [Concomitant]
     Active Substance: CEFUROXIME SODIUM
     Indication: Product used for unknown indication
     Dosage: 1.5 UNK
     Route: 042

REACTIONS (12)
  - Kidney transplant rejection [Not Recovered/Not Resolved]
  - Immunosuppression [Unknown]
  - Chronic allograft nephropathy [Unknown]
  - Renal tubular atrophy [Unknown]
  - Tubulointerstitial nephritis [Unknown]
  - Renal tubular injury [Unknown]
  - Renal tubular necrosis [Unknown]
  - Hypertransaminasaemia [Unknown]
  - Urine output decreased [Recovering/Resolving]
  - Blood creatinine increased [Recovering/Resolving]
  - Aspartate aminotransferase decreased [Unknown]
  - Alanine aminotransferase decreased [Unknown]

NARRATIVE: CASE EVENT DATE: 20211207
